FAERS Safety Report 11692349 (Version 1)
Quarter: 2015Q4

REPORT INFORMATION
  Report Type: Spontaneous
  Country: US (occurrence: US)
  Receive Date: 20151103
  Receipt Date: 20151103
  Transmission Date: 20160304
  Serious: No
  Sender: FDA-Public Use
  Company Number: US-TEVA-550303USA

PATIENT
  Sex: Female

DRUGS (1)
  1. DESMOPRESSIN [Suspect]
     Active Substance: DESMOPRESSIN
     Indication: POLLAKIURIA
     Route: 065
     Dates: end: 20150301

REACTIONS (5)
  - Neck pain [Unknown]
  - Pruritus [Unknown]
  - Urticaria [Unknown]
  - Hallucination [Unknown]
  - Vomiting [Unknown]

NARRATIVE: CASE EVENT DATE: 2015
